FAERS Safety Report 14355634 (Version 1)
Quarter: 2018Q1

REPORT INFORMATION
  Report Type: Spontaneous
  Country: FR (occurrence: FR)
  Receive Date: 20180105
  Receipt Date: 20180105
  Transmission Date: 20180509
  Serious: Yes (Other)
  Sender: FDA-Public Use
  Company Number: FR-TEVA-2018-FR-843989

PATIENT
  Age: 66 Year
  Sex: Female

DRUGS (3)
  1. METHOTREXATE. [Suspect]
     Active Substance: METHOTREXATE
     Indication: ERYTHRODERMIC PSORIASIS
     Dosage: DOSAGE FORM: UNSPECIFIED, RECEIVED 8 WEEKS OF METHOTREXATE
     Route: 048
     Dates: start: 20151201, end: 20160115
  2. HUMIRA [Suspect]
     Active Substance: ADALIMUMAB
     Indication: ERYTHRODERMIC PSORIASIS
     Dosage: 9 INJECTIONS AU TOTAL
     Route: 058
     Dates: start: 20160122, end: 20160613
  3. STELARA [Suspect]
     Active Substance: USTEKINUMAB
     Indication: ERYTHRODERMIC PSORIASIS
     Dosage: 2 INJECTIONS AU TOTAL
     Route: 058
     Dates: start: 20160713, end: 20160813

REACTIONS (3)
  - Breast cancer [Unknown]
  - Product use in unapproved indication [Unknown]
  - Off label use [Unknown]

NARRATIVE: CASE EVENT DATE: 20160713
